FAERS Safety Report 13358048 (Version 2)
Quarter: 2017Q1

REPORT INFORMATION
  Report Type: Spontaneous
  Country: US (occurrence: US)
  Receive Date: 20170322
  Receipt Date: 20170322
  Transmission Date: 20170429
  Serious: No
  Sender: FDA-Public Use
  Company Number: US-LUPIN PHARMACEUTICALS INC.-E2B_00007516

PATIENT
  Sex: Male
  Weight: 81 kg

DRUGS (2)
  1. TIMOLOL. [Concomitant]
     Active Substance: TIMOLOL
     Indication: PRODUCT USED FOR UNKNOWN INDICATION
     Dosage: 1 DROP, UNK
     Route: 047
  2. BIMATOPROST OPHTHALMIC SOLUTION, 0.03% [Suspect]
     Active Substance: BIMATOPROST
     Indication: GLAUCOMA
     Dosage: .3 MG/ML,UNK,
     Route: 047

REACTIONS (2)
  - Eye pain [Recovered/Resolved]
  - Product packaging issue [Unknown]
